FAERS Safety Report 4595473-8 (Version None)
Quarter: 2005Q1

REPORT INFORMATION
  Report Type: 
  Country: None (occurrence: None)
  Receive Date: 20050302
  Receipt Date: 20050221
  Transmission Date: 20050727
  Serious: Yes (Hospitalization, Other)
  Sender: FDA-Public Use
  Company Number: GB-JNJFOC-20050204868

PATIENT
  Sex: Female
  Weight: 76 kg

DRUGS (18)
  1. REMICADE [Suspect]
     Route: 042
  2. TOLTERODINE [Concomitant]
  3. CYCLOSPORINE [Concomitant]
  4. OILATUM [Concomitant]
  5. OILATUM [Concomitant]
  6. OMEPRAZOLE [Concomitant]
  7. PAROXETINE [Concomitant]
  8. ROFECOXIB [Concomitant]
  9. DOMPERIDONE [Concomitant]
  10. FELODIPINE [Concomitant]
  11. LOSARTAN POTASSIUM [Concomitant]
  12. AQUEOUS CREAM [Concomitant]
  13. AQUEOUS CREAM [Concomitant]
  14. AQUEOUS CREAM [Concomitant]
  15. ASILONE [Concomitant]
  16. COCODAMOL [Concomitant]
  17. COCODAMOL [Concomitant]
  18. BENDROFLUAZIDE [Concomitant]

REACTIONS (2)
  - DEPRESSION [None]
  - URINARY TRACT INFECTION [None]
